FAERS Safety Report 9408530 (Version 1)
Quarter: 2013Q3

REPORT INFORMATION
  Report Type: Spontaneous
  Country: US (occurrence: US)
  Receive Date: 20130718
  Receipt Date: 20130718
  Transmission Date: 20140515
  Serious: No
  Sender: FDA-Public Use
  Company Number: US-ASTELLAS-2013US005301

PATIENT
  Age: 71 Year
  Sex: Male

DRUGS (2)
  1. VESICARE [Suspect]
     Indication: BLADDER DISORDER
     Dosage: 10 MG, UID/QD
     Route: 048
     Dates: start: 20130508, end: 20130509
  2. VESICARE [Suspect]
     Indication: BENIGN PROSTATIC HYPERPLASIA

REACTIONS (2)
  - Off label use [Unknown]
  - Balance disorder [Recovered/Resolved]
